FAERS Safety Report 11160274 (Version 2)
Quarter: 2015Q3

REPORT INFORMATION
  Report Type: Report from Study
  Country: VE (occurrence: VE)
  Receive Date: 20150603
  Receipt Date: 20150714
  Transmission Date: 20151125
  Serious: Yes (Hospitalization)
  Sender: FDA-Public Use
  Company Number: PHHY2015VE065843

PATIENT
  Age: 38 Year
  Sex: Male

DRUGS (2)
  1. SANDOSTATIN LAR DEPOT [Suspect]
     Active Substance: OCTREOTIDE ACETATE
     Dosage: 40 MG, QMO
     Route: 065
     Dates: start: 201506
  2. SANDOSTATIN LAR DEPOT [Suspect]
     Active Substance: OCTREOTIDE ACETATE
     Indication: SMALL INTESTINE CARCINOMA
     Dosage: 20 MG, QMO
     Route: 065
     Dates: start: 20141214, end: 201506

REACTIONS (19)
  - Blood electrolytes decreased [Recovered/Resolved]
  - Blood sodium decreased [Unknown]
  - Urine potassium increased [Recovered/Resolved]
  - Urine output increased [Recovered/Resolved]
  - Diarrhoea [Unknown]
  - Off label use [Unknown]
  - Hypotonia [Recovered/Resolved]
  - Thirst [Unknown]
  - Asthenia [Unknown]
  - Malaise [Unknown]
  - Expired product administered [Unknown]
  - Gait disturbance [Recovered/Resolved]
  - Blood potassium decreased [Unknown]
  - Hypoaesthesia [Unknown]
  - Pain in extremity [Unknown]
  - Polydipsia [Recovered/Resolved]
  - Blood chromogranin A increased [Unknown]
  - General physical health deterioration [Unknown]
  - Muscle spasms [Recovered/Resolved]

NARRATIVE: CASE EVENT DATE: 201412
